FAERS Safety Report 4846119-2 (Version None)
Quarter: 2006Q1

REPORT INFORMATION
  Report Type: 
  Country: None (occurrence: None)
  Receive Date: 20051130
  Receipt Date: 20051117
  Transmission Date: 20060701
  Serious: Yes (Hospitalization, Other)
  Sender: FDA-Public Use
  Company Number: 2005149484

PATIENT
  Age: 15 Year
  Sex: Female
  Weight: 122.4712 kg

DRUGS (3)
  1. DEPO-PROVERA SUSPENSION/INJ [Suspect]
     Indication: MENORRHAGIA
     Dosage: 150 MG (150 MG, EVERY 90 DAYS, 1ST INJECTION), INTRAMUSCULAR
     Route: 030
     Dates: start: 20050916, end: 20050916
  2. DEPO-PROVERA SUSPENSION/INJ [Suspect]
     Indication: MENORRHAGIA
     Dosage: 150 MG (150 MG, EVERY 90 DAYS, 1ST INJECTION), INTRAMUSCULAR
     Route: 030
     Dates: start: 20051024, end: 20051024
  3. NUVARING (ETHINYLESTRADIOL, ETONOGESTREL) [Concomitant]

REACTIONS (3)
  - HYPOAESTHESIA [None]
  - PARAESTHESIA ORAL [None]
  - PRURITUS GENERALISED [None]
